FAERS Safety Report 5147951-0 (Version None)
Quarter: 2006Q4

REPORT INFORMATION
  Report Type: 
  Country: None (occurrence: None)
  Receive Date: 20061106
  Receipt Date: 20061011
  Transmission Date: 20070319
  Serious: Yes (Hospitalization, Other)
  Sender: FDA-Public Use
  Company Number: 2005161674

PATIENT
  Age: 54 Year
  Sex: Female
  Weight: 86.1834 kg

DRUGS (6)
  1. CELEBREX [Suspect]
     Indication: OSTEOARTHRITIS
     Dosage: 200 MG (200 MG, 1 IN 1 D)
  2. CELEBREX [Suspect]
     Indication: PAIN
     Dosage: 200 MG (200 MG, 1 IN 1 D)
  3. BEXTRA [Suspect]
     Indication: PAIN
  4. VIOXX [Suspect]
     Indication: INFLAMMATION
     Dosage: 25 MG (25 MG, 1 IN 1 D)
     Dates: start: 20000905
  5. VIOXX [Suspect]
     Indication: MUSCULOSKELETAL DISORDER
     Dosage: 25 MG (25 MG, 1 IN 1 D)
     Dates: start: 20000905
  6. VIOXX [Suspect]
     Indication: OSTEOARTHRITIS
     Dosage: 25 MG (25 MG, 1 IN 1 D)
     Dates: start: 20000905

REACTIONS (3)
  - CEREBRAL THROMBOSIS [None]
  - HYPERTENSIVE HEART DISEASE [None]
  - PNEUMONIA [None]
